FAERS Safety Report 8155554-9 (Version None)
Quarter: 2012Q1

REPORT INFORMATION
  Report Type: 
  Country: None (occurrence: None)
  Receive Date: 20120222
  Receipt Date: 20120213
  Transmission Date: 20120608
  Serious: Yes (Death)
  Sender: FDA-Public Use
  Company Number: IT-CELGENEUS-083-21880-12011019

PATIENT

DRUGS (1)
  1. REVLIMID [Suspect]
     Indication: MYELOMA RECURRENCE
     Dosage: 10 MILLIGRAM
     Route: 048
     Dates: start: 20110107, end: 20110201

REACTIONS (1)
  - MULTIPLE MYELOMA [None]
